FAERS Safety Report 9054901 (Version 3)
Quarter: 2013Q2

REPORT INFORMATION
  Report Type: Report from Study
  Country: JP (occurrence: JP)
  Receive Date: 20130208
  Receipt Date: 20130430
  Transmission Date: 20140414
  Serious: Yes (Hospitalization)
  Sender: FDA-Public Use
  Company Number: JP-SANOFI-AVENTIS-2013SA009660

PATIENT
  Age: 67 Year
  Sex: Female
  Weight: 73.9 kg

DRUGS (8)
  1. LANTUS SOLOSTAR [Suspect]
     Indication: TYPE 2 DIABETES MELLITUS
     Dosage: DOSE:6 UNIT(S)
     Route: 058
     Dates: start: 20120612, end: 20121026
  2. SOLOSTAR [Suspect]
     Indication: DEVICE THERAPY
     Dates: start: 20120612, end: 20121026
  3. METFORMIN HYDROCHLORIDE [Concomitant]
     Indication: TYPE 2 DIABETES MELLITUS
     Route: 048
     Dates: start: 20120604
  4. AMARYL [Concomitant]
     Indication: TYPE 2 DIABETES MELLITUS
     Route: 048
     Dates: start: 20120604, end: 20121026
  5. LIPITOR /UNK/ [Concomitant]
     Route: 048
     Dates: start: 20120604
  6. BLOPRESS [Concomitant]
     Route: 048
     Dates: start: 20120604
  7. METHYCOBAL [Concomitant]
     Route: 048
     Dates: start: 20120604
  8. MAGLAX [Concomitant]
     Route: 048
     Dates: start: 20120604, end: 20121026

REACTIONS (1)
  - Blood glucose increased [Recovered/Resolved]
